FAERS Safety Report 5906847-4 (Version None)
Quarter: 2008Q3

REPORT INFORMATION
  Report Type: 
  Country: None (occurrence: None)
  Receive Date: 20080929
  Receipt Date: 20080919
  Transmission Date: 20090109
  Serious: Yes (Hospitalization)
  Sender: FDA-Public Use
  Company Number: 034136

PATIENT
  Age: 14 Year
  Sex: Female
  Weight: 68 kg

DRUGS (1)
  1. CLARAVIS [Suspect]
     Indication: ACNE
     Dosage: 1 TABLET, QD, ORAL
     Route: 048
     Dates: start: 20080618, end: 20080912

REACTIONS (2)
  - ABDOMINAL PAIN UPPER [None]
  - INTESTINAL ULCER [None]
